FAERS Safety Report 10527369 (Version 1)
Quarter: 2014Q4

REPORT INFORMATION
  Report Type: Spontaneous
  Country: US (occurrence: None)
  Receive Date: 20141017
  Receipt Date: 20141017
  Transmission Date: 20150528
  Serious: Yes (Hospitalization)
  Sender: FDA-Public Use
  Company Number: None

PATIENT
  Age: 36 Year
  Sex: Male
  Weight: 63.5 kg

DRUGS (1)
  1. INTRON A [Suspect]
     Active Substance: INTERFERON ALFA-2B
     Dosage: 33 MU
     Dates: end: 20140822

REACTIONS (4)
  - Pyrexia [None]
  - Diarrhoea [None]
  - Culture stool positive [None]
  - Shigella test positive [None]

NARRATIVE: CASE EVENT DATE: 20140822
